FAERS Safety Report 18468454 (Version 1)
Quarter: 2020Q4

REPORT INFORMATION
  Report Type: Other
  Country: US (occurrence: US)
  Receive Date: 20201105
  Receipt Date: 20201105
  Transmission Date: 20210114
  Serious: Yes (Other)
  Sender: FDA-Public Use
  Company Number: US-ROCHE-2708303

PATIENT
  Sex: Male

DRUGS (1)
  1. OCREVUS [Suspect]
     Active Substance: OCRELIZUMAB
     Indication: PRIMARY PROGRESSIVE MULTIPLE SCLEROSIS
     Dosage: (PRESCRIBED 300 MG ON DAY 1 AND DAY 15 AND 600 MG ONCE IN 6 MONTHS )
     Route: 065
     Dates: start: 20191211

REACTIONS (1)
  - Urinary tract infection [Not Recovered/Not Resolved]
